FAERS Safety Report 5839871-0 (Version None)
Quarter: 2008Q3

REPORT INFORMATION
  Report Type: 
  Country: None (occurrence: None)
  Receive Date: 20080811
  Receipt Date: 20080801
  Transmission Date: 20090109
  Serious: Yes (Other)
  Sender: FDA-Public Use
  Company Number: US-BAYER-200813176BCC

PATIENT
  Age: 41 Year
  Sex: Male
  Weight: 64 kg

DRUGS (2)
  1. ALEVE [Suspect]
     Indication: BACK PAIN
     Dosage: AS USED: 440 MG  UNIT DOSE: 220 MG
     Route: 048
     Dates: start: 20080101, end: 20080725
  2. ALEVE [Suspect]
     Indication: BACK PAIN
     Dosage: AS USED: 440 MG  UNIT DOSE: 220 MG
     Route: 048
     Dates: start: 20080101, end: 20080725

REACTIONS (1)
  - HAEMATOCHEZIA [None]
